FAERS Safety Report 21541276 (Version 3)
Quarter: 2022Q4

REPORT INFORMATION
  Report Type: Report from Study
  Country: US (occurrence: US)
  Receive Date: 20221102
  Receipt Date: 20221222
  Transmission Date: 20230112
  Serious: No
  Sender: FDA-Public Use
  Company Number: US-TAIHO-2022-001935

PATIENT
  Age: 60 Year
  Sex: Male
  Weight: 79.38 kg

DRUGS (2)
  1. LONSURF [Suspect]
     Active Substance: TIPIRACIL HYDROCHLORIDE\TRIFLURIDINE
     Indication: Oesophageal carcinoma
     Dosage: MORNING 75 MG AND EVENING 60 MG. CURRENT CYCLE UNKNOWN?DAILY DOSE: 135 MILLIGRAM(S)
     Route: 048
     Dates: start: 201801
  2. LONSURF [Suspect]
     Active Substance: TIPIRACIL HYDROCHLORIDE\TRIFLURIDINE
     Dosage: CYCLE, DOSE AND FREQUENCY UNKNOWN
     Dates: end: 20220912

REACTIONS (2)
  - Disease progression [Unknown]
  - Off label use [Unknown]
